FAERS Safety Report 21610729 (Version 1)
Quarter: 2022Q4

REPORT INFORMATION
  Report Type: Spontaneous
  Country: FR (occurrence: None)
  Receive Date: 20221117
  Receipt Date: 20221117
  Transmission Date: 20230113
  Serious: Yes (Hospitalization)
  Sender: FDA-Public Use
  Company Number: FR-ROCHE-3219942

PATIENT
  Age: 43 Year
  Sex: Male

DRUGS (8)
  1. RIVOTRIL [Suspect]
     Active Substance: CLONAZEPAM
     Indication: Product used for unknown indication
     Route: 065
  2. COCAINE [Suspect]
     Active Substance: COCAINE
     Indication: Product used for unknown indication
     Route: 065
  3. LYRICA [Suspect]
     Active Substance: PREGABALIN
     Indication: Toxicity to various agents
     Route: 065
  4. METHADONE HYDROCHLORIDE [Suspect]
     Active Substance: METHADONE HYDROCHLORIDE
     Indication: Product used for unknown indication
     Route: 065
  5. VALIUM [Suspect]
     Active Substance: DIAZEPAM
     Indication: Toxicity to various agents
     Route: 065
  6. SUBUTEX [Suspect]
     Active Substance: BUPRENORPHINE HYDROCHLORIDE
     Indication: Product used for unknown indication
     Route: 065
  7. OXAZEPAM [Suspect]
     Active Substance: OXAZEPAM
     Indication: Product used for unknown indication
     Route: 065
  8. TEMAZEPAM [Suspect]
     Active Substance: TEMAZEPAM
     Indication: Product used for unknown indication
     Route: 065

REACTIONS (10)
  - Aspiration [Recovered/Resolved]
  - Hypotension [Recovered/Resolved]
  - Vomiting [Recovered/Resolved]
  - Coma [Recovered/Resolved]
  - Bladder dilatation [Recovered/Resolved]
  - Bradypnoea [Recovered/Resolved]
  - Miosis [Recovered/Resolved]
  - Drug abuse [Recovered/Resolved]
  - Somnolence [Unknown]
  - Sinus arrhythmia [Unknown]
